FAERS Safety Report 7482879-2 (Version None)
Quarter: 2011Q2

REPORT INFORMATION
  Report Type: 
  Country: None (occurrence: None)
  Receive Date: 20110516
  Receipt Date: 20110124
  Transmission Date: 20111010
  Serious: No
  Sender: FDA-Public Use
  Company Number: US-BAYER-2011-036637

PATIENT
  Sex: Female
  Weight: 61 kg

DRUGS (4)
  1. VALIUM [Concomitant]
  2. CALCIUM [Concomitant]
  3. ALEVE (CAPLET) [Suspect]
     Indication: ARTHRITIS
     Dosage: UNK
     Route: 048
     Dates: start: 20100101
  4. MULTI-VITAMIN [Concomitant]

REACTIONS (1)
  - OEDEMA PERIPHERAL [None]
